FAERS Safety Report 14339959 (Version 1)
Quarter: 2017Q4

REPORT INFORMATION
  Report Type: Spontaneous
  Country: US (occurrence: US)
  Receive Date: 20171231
  Receipt Date: 20171231
  Transmission Date: 20180321
  Serious: No
  Sender: FDA-Public Use
  Company Number: US-TEVA-2017-US-839244

PATIENT
  Sex: Male

DRUGS (1)
  1. CLONAZEPAM. [Suspect]
     Active Substance: CLONAZEPAM
     Indication: GENERALISED ANXIETY DISORDER
     Dosage: 2 MILLIGRAM DAILY;

REACTIONS (9)
  - Product lot number issue [Unknown]
  - Anxiety [Unknown]
  - Drug intolerance [Unknown]
  - Insomnia [Unknown]
  - Heart rate irregular [Unknown]
  - Chest pain [Unknown]
  - Feeling abnormal [Unknown]
  - Chest discomfort [Unknown]
  - Fear [Unknown]
